FAERS Safety Report 9266598 (Version 2)
Quarter: 2013Q2

REPORT INFORMATION
  Report Type: Report from Study
  Country: US (occurrence: US)
  Receive Date: 20130502
  Receipt Date: 20130527
  Transmission Date: 20140414
  Serious: Yes (Life-Threatening, Hospitalization, Other)
  Sender: FDA-Public Use
  Company Number: PHEH2013US009551

PATIENT
  Age: 75 Year
  Sex: Male
  Weight: 59 kg

DRUGS (27)
  1. TOBI [Suspect]
     Indication: BRONCHIECTASIS
     Dosage: 300 MG, BID
     Dates: start: 20130127
  2. TOBI [Suspect]
     Dosage: UNK
     Dates: end: 20130216
  3. ALIGN [Concomitant]
     Dosage: UNK
     Route: 048
     Dates: start: 20130429
  4. ALIMTA [Concomitant]
     Dosage: UNK EVERY 4 WEEKS
  5. ALVESCO [Concomitant]
     Dosage: 2 DF, BID
     Dates: start: 20130109
  6. ASPIRIN [Concomitant]
     Dosage: 1 DF, QD
     Route: 048
     Dates: start: 20130429
  7. AVASTIN [Concomitant]
     Dosage: UNK EVERY 4 WEEKS
  8. BIOTENE [Concomitant]
     Dosage: UNK
  9. BISOPROLOL FUMARATE [Concomitant]
     Dosage: 5 MG, BID
     Route: 048
     Dates: start: 20120222
  10. BROVANA [Concomitant]
     Dosage: 1 DF, BID
     Dates: start: 20130109
  11. DEXAMETHASONE [Concomitant]
     Dosage: 4 MG, BID (ONE TABLET BEFORE AND AFTER CHEMOTHERAPY)
     Route: 048
     Dates: start: 20110511
  12. DEXILANT [Concomitant]
     Dosage: 60 MG, DAILY, EVERY MORNING BEFOR BREAKFAST
     Route: 048
     Dates: start: 20121130
  13. DRY EYES SOLUTION [Concomitant]
     Indication: DRY EYE
     Dosage: UNK
  14. FOLIC ACID [Concomitant]
     Dosage: 1 MG, EVERY DAY
     Route: 048
     Dates: start: 20110506
  15. FUROSEMIDE [Concomitant]
     Dosage: 20 MG, (1/2 TABLET DAILY)
     Route: 048
     Dates: start: 20130503
  16. KETOCONAZOLE [Concomitant]
     Dosage: UNK
     Dates: start: 20101229
  17. LISINOPRIL [Concomitant]
     Dosage: 10 MG, DAILY
     Route: 048
  18. MAGNESIUM [Concomitant]
     Dosage: 400 MG, BID
     Route: 048
     Dates: start: 20130429
  19. MULTIVITAMINS [Concomitant]
     Dosage: 1 DF, DAILY
     Route: 048
     Dates: start: 20110506
  20. POTASSIUM CHLORIDE [Concomitant]
     Dosage: 1 DF, DAILY
     Route: 048
     Dates: start: 20130503
  21. RANITIDINE [Concomitant]
     Dosage: 300 MG, (DAILY AT BEDTIME)
     Route: 048
     Dates: start: 20130429
  22. SPIRIVA HANDIHALER [Concomitant]
     Dosage: 1 DF, DAILY
     Dates: start: 20130124
  23. VENTOLIN HFA [Concomitant]
     Dosage: UNK 2 PUFFS EVERY 4-6 HOURS AS NEEDED
     Dates: start: 20130124
  24. VERDESO [Concomitant]
     Dosage: 1 DF, DAILY
     Dates: start: 20110328
  25. VITAMIN D [Concomitant]
     Dosage: 1 DF, DAILY
     Route: 048
     Dates: start: 20130429
  26. WARFARIN SODIUM [Concomitant]
     Dosage: 3 MG, DAILY
     Route: 048
     Dates: start: 20130429
  27. ZOLPIDEM [Concomitant]
     Indication: SLEEP DISORDER
     Dosage: 10 MG, (AT BEDTIME AS NEEDED)
     Route: 048
     Dates: start: 20110520

REACTIONS (4)
  - Pulmonary embolism [Recovered/Resolved with Sequelae]
  - Thrombosis [Unknown]
  - Fatigue [Unknown]
  - Dyspnoea [Unknown]
